FAERS Safety Report 20688756 (Version 1)
Quarter: 2022Q2

REPORT INFORMATION
  Report Type: Spontaneous
  Country: ES (occurrence: ES)
  Receive Date: 20220408
  Receipt Date: 20220408
  Transmission Date: 20220721
  Serious: Yes (Hospitalization, Other)
  Sender: FDA-Public Use
  Company Number: ES-VALIDUS PHARMACEUTICALS LLC-ES-VDP-2022-015347

PATIENT

DRUGS (2)
  1. CEFOTAXIME SODIUM [Suspect]
     Active Substance: CEFOTAXIME SODIUM
     Indication: Periorbital cellulitis
     Dosage: 680 MG, Q6H
     Route: 065
     Dates: start: 20220103, end: 20220116
  2. CLOXACILLIN [Suspect]
     Active Substance: CLOXACILLIN
     Indication: Periorbital cellulitis
     Dosage: 450 MG, Q6H
     Route: 065
     Dates: start: 20220103, end: 20220116

REACTIONS (5)
  - Drug reaction with eosinophilia and systemic symptoms [Recovered/Resolved]
  - Rash morbilliform [Recovered/Resolved]
  - Hypertransaminasaemia [Recovered/Resolved]
  - Pyrexia [Recovered/Resolved]
  - Eosinophilia [Recovering/Resolving]

NARRATIVE: CASE EVENT DATE: 20220116
